FAERS Safety Report 11790700 (Version 5)
Quarter: 2016Q2

REPORT INFORMATION
  Report Type: Spontaneous
  Country: US (occurrence: US)
  Receive Date: 20151201
  Receipt Date: 20160504
  Transmission Date: 20160815
  Serious: Yes (Other)
  Sender: FDA-Public Use
  Company Number: US-PFIZER INC-2015377037

PATIENT
  Age: 79 Year
  Sex: Female
  Weight: 76 kg

DRUGS (4)
  1. IBRANCE [Suspect]
     Active Substance: PALBOCICLIB
     Indication: BREAST CANCER
     Dosage: 125 MG, CYCLIC, (DAY 1-21 Q28 DAYS)
     Route: 048
     Dates: start: 20151014
  2. IBRANCE [Suspect]
     Active Substance: PALBOCICLIB
     Dosage: UNK
  3. IBRANCE [Suspect]
     Active Substance: PALBOCICLIB
     Dosage: UNK
  4. IBRANCE [Suspect]
     Active Substance: PALBOCICLIB
     Dosage: UNK

REACTIONS (8)
  - Paraesthesia [Unknown]
  - Breast cancer [Unknown]
  - Urinary tract infection [Unknown]
  - Nail disorder [Unknown]
  - Epistaxis [Not Recovered/Not Resolved]
  - Disease progression [Unknown]
  - Productive cough [Unknown]
  - Fatigue [Not Recovered/Not Resolved]

NARRATIVE: CASE EVENT DATE: 20160328
